FAERS Safety Report 14780291 (Version 1)
Quarter: 2018Q2

REPORT INFORMATION
  Report Type: Spontaneous
  Country: TR (occurrence: TR)
  Receive Date: 20180419
  Receipt Date: 20180419
  Transmission Date: 20180711
  Serious: Yes (Other)
  Sender: FDA-Public Use
  Company Number: TR-BAUSCH-BL-2018-010288

PATIENT

DRUGS (1)
  1. CLOBETASOL [Suspect]
     Active Substance: CLOBETASOL
     Indication: DERMATITIS DIAPER
     Route: 061

REACTIONS (3)
  - Prescription drug used without a prescription [Unknown]
  - Intentional product misuse [Unknown]
  - Cushing^s syndrome [Unknown]
